FAERS Safety Report 15229595 (Version 1)
Quarter: 2018Q3

REPORT INFORMATION
  Report Type: Spontaneous
  Country: US (occurrence: US)
  Receive Date: 20180802
  Receipt Date: 20180802
  Transmission Date: 20181010
  Serious: No
  Sender: FDA-Public Use
  Company Number: US-UNITED THERAPEUTICS-UNT-2018-009983

PATIENT
  Sex: Female
  Weight: 61.68 kg

DRUGS (5)
  1. TYVASO [Suspect]
     Active Substance: TREPROSTINIL
     Dosage: 42 ?G
  2. OPSUMIT [Concomitant]
     Active Substance: MACITENTAN
     Indication: PRODUCT USED FOR UNKNOWN INDICATION
     Route: 065
  3. TYVASO [Suspect]
     Active Substance: TREPROSTINIL
     Indication: PULMONARY ARTERIAL HYPERTENSION
     Dosage: 18?54 MICROGRAMS, QID
     Dates: start: 20180530
  4. ADCIRCA [Concomitant]
     Active Substance: TADALAFIL
     Indication: PRODUCT USED FOR UNKNOWN INDICATION
     Route: 065
  5. TYVASO [Suspect]
     Active Substance: TREPROSTINIL
     Dosage: 36?42 MICROGRAMS, QID

REACTIONS (6)
  - Somnolence [Unknown]
  - Dyspnoea [Unknown]
  - Dyspnoea exertional [Unknown]
  - Cough [Unknown]
  - Fatigue [Unknown]
  - Therapy non-responder [Unknown]

NARRATIVE: CASE EVENT DATE: 2018
